FAERS Safety Report 11497420 (Version 9)
Quarter: 2016Q1

REPORT INFORMATION
  Report Type: Spontaneous
  Country: US (occurrence: US)
  Receive Date: 20150911
  Receipt Date: 20160106
  Transmission Date: 20160525
  Serious: Yes (Hospitalization, Other)
  Sender: FDA-Public Use
  Company Number: US-UNITED THERAPEUTICS-UNT-2015-011207

PATIENT
  Age: 47 Year
  Sex: Female
  Weight: 68.27 kg

DRUGS (33)
  1. REMODULIN [Suspect]
     Active Substance: TREPROSTINIL
     Dosage: 0.092 ?G/KG, CONTINUING
     Route: 041
  2. LETAIRIS [Suspect]
     Active Substance: AMBRISENTAN
     Indication: PULMONARY HYPERTENSION
     Dosage: 10 MG, QD
     Route: 048
     Dates: start: 20110208
  3. LETAIRIS [Suspect]
     Active Substance: AMBRISENTAN
     Indication: DRUG ABUSE
     Dosage: 10 MG, QD
     Route: 048
     Dates: start: 201103
  4. REVATIO [Suspect]
     Active Substance: SILDENAFIL CITRATE
     Dosage: UNK
  5. DOCUSATE SODIUM. [Concomitant]
     Active Substance: DOCUSATE SODIUM
     Indication: CONSTIPATION
     Dosage: 250 MG, BID
     Route: 048
     Dates: start: 2011
  6. AMITRIPTYLINE [Concomitant]
     Active Substance: AMITRIPTYLINE
     Dosage: 3 (20 MG) TABLETS IN EVENING
     Route: 048
  7. REMODULIN [Suspect]
     Active Substance: TREPROSTINIL
     Dosage: 92 NG PER HOUR CONTINUING
     Route: 041
     Dates: start: 20140806
  8. LETAIRIS [Suspect]
     Active Substance: AMBRISENTAN
     Dosage: 5 MG, QD
     Route: 048
     Dates: start: 20110209
  9. OMEPRAZOLE. [Concomitant]
     Active Substance: OMEPRAZOLE
     Indication: PYLORIC STENOSIS
  10. VITAMIN C [Concomitant]
     Active Substance: ASCORBIC ACID
     Indication: SUPPLEMENTATION THERAPY
     Dosage: 500 MG, QD
     Route: 048
     Dates: start: 201505
  11. ROPINIROLE. [Concomitant]
     Active Substance: ROPINIROLE
     Indication: RESTLESS LEGS SYNDROME
     Dosage: 0.25 MG, BEFORE BED
     Route: 048
     Dates: start: 201505
  12. POTASSIUM [Concomitant]
     Active Substance: POTASSIUM
     Indication: CARDIAC DISORDER
     Dosage: 20 MEQ, TID
     Dates: start: 2010
  13. BENADRYL [Concomitant]
     Active Substance: DIPHENHYDRAMINE HYDROCHLORIDE
     Indication: HYPERSENSITIVITY
     Dosage: 25 MG, BID
     Route: 048
     Dates: start: 201504, end: 201509
  14. IRON [Concomitant]
     Active Substance: IRON
     Indication: NEUROPATHY PERIPHERAL
     Dosage: 325 MG, BID
     Route: 048
     Dates: start: 201205
  15. CELEBREX [Concomitant]
     Active Substance: CELECOXIB
     Indication: MYALGIA
  16. POTASSIUM [Concomitant]
     Active Substance: POTASSIUM
     Indication: RENAL DISORDER
  17. AMITRIPTYLINE [Concomitant]
     Active Substance: AMITRIPTYLINE
     Indication: HEADACHE
     Dosage: 2 (20 MG) TABLETS IN MORNING
     Route: 048
     Dates: start: 201306
  18. IRON [Concomitant]
     Active Substance: IRON
     Indication: RESTLESS LEGS SYNDROME
     Dosage: UNK
     Dates: start: 201505
  19. ONDANSETRON [Concomitant]
     Active Substance: ONDANSETRON
     Indication: PRODUCT USED FOR UNKNOWN INDICATION
     Dosage: UNK
     Dates: start: 201506
  20. LETAIRIS [Suspect]
     Active Substance: AMBRISENTAN
     Dosage: 10 MG, QD
     Route: 048
     Dates: start: 20130404
  21. DIGOXIN. [Concomitant]
     Active Substance: DIGOXIN
     Indication: CARDIAC FAILURE
     Dosage: 10 MG, ONCE IN THE EVENING
     Route: 048
     Dates: start: 201010
  22. REMODULIN [Suspect]
     Active Substance: TREPROSTINIL
     Indication: PULMONARY HYPERTENSION
     Dosage: 0.022 ?G/KG, CONTINUING
     Route: 058
     Dates: start: 201311
  23. SPIRONOLACTONE. [Concomitant]
     Active Substance: SPIRONOLACTONE
     Indication: CARDIAC FAILURE
     Dosage: 100 MG, BID
     Route: 048
     Dates: start: 201101
  24. CELEBREX [Concomitant]
     Active Substance: CELECOXIB
     Indication: ARTHRALGIA
     Dosage: 1000 MG, BID
     Dates: start: 2005
  25. XARELTO [Concomitant]
     Active Substance: RIVAROXABAN
     Indication: RESTLESS LEGS SYNDROME
     Dosage: 10 MG, BEFORE BED
     Route: 048
     Dates: start: 201504
  26. ZYRTEC [Concomitant]
     Active Substance: CETIRIZINE HYDROCHLORIDE
     Indication: PRODUCT USED FOR UNKNOWN INDICATION
     Dosage: UNK
     Dates: start: 201502
  27. REMODULIN [Suspect]
     Active Substance: TREPROSTINIL
     Dosage: 0.022 ?G/KG, CONTINUING
     Route: 041
  28. REVATIO [Suspect]
     Active Substance: SILDENAFIL CITRATE
     Indication: PULMONARY HYPERTENSION
     Dosage: 60 MG, TID
     Route: 048
     Dates: start: 201010
  29. OMEPRAZOLE. [Concomitant]
     Active Substance: OMEPRAZOLE
     Indication: ULCER
     Dosage: 40 MG, BID
     Dates: start: 1998
  30. OMEPRAZOLE. [Concomitant]
     Active Substance: OMEPRAZOLE
     Indication: GASTROOESOPHAGEAL REFLUX DISEASE
  31. LEVOTHYROXINE. [Concomitant]
     Active Substance: LEVOTHYROXINE
     Indication: HYPOTHYROIDISM
     Dosage: 100 MG, QD
     Route: 048
     Dates: start: 2012
  32. SIMVASTATIN. [Concomitant]
     Active Substance: SIMVASTATIN
     Indication: CARDIAC FAILURE
     Dosage: 10 MG, ONCE BEFORE BED
     Route: 048
     Dates: start: 201010
  33. DEMADEX [Concomitant]
     Active Substance: TORSEMIDE
     Indication: CARDIAC FAILURE
     Dosage: UNK
     Dates: start: 201206

REACTIONS (26)
  - Device breakage [Unknown]
  - Injection site cellulitis [Not Recovered/Not Resolved]
  - Pulmonary arterial hypertension [Unknown]
  - Dermatitis contact [Not Recovered/Not Resolved]
  - Device leakage [Unknown]
  - Dizziness [Unknown]
  - Sepsis [Unknown]
  - Blindness transient [Recovered/Resolved]
  - Impaired healing [Not Recovered/Not Resolved]
  - Pyrexia [Unknown]
  - Drug dose omission [Unknown]
  - Organ failure [Unknown]
  - Fatigue [Unknown]
  - Malaise [Recovering/Resolving]
  - Device dislocation [Unknown]
  - Cough [Unknown]
  - Vomiting [Unknown]
  - Pulmonary oedema [Recovered/Resolved]
  - Anaemia [Unknown]
  - Laboratory test abnormal [Unknown]
  - Renal failure [Not Recovered/Not Resolved]
  - Diarrhoea [Unknown]
  - Injection site scab [Unknown]
  - Oedema peripheral [Unknown]
  - Hypotension [Unknown]
  - Dyspnoea [Unknown]

NARRATIVE: CASE EVENT DATE: 2015
